FAERS Safety Report 4536821-4 (Version None)
Quarter: 2004Q4

REPORT INFORMATION
  Report Type: 
  Country: None (occurrence: None)
  Receive Date: 20041220
  Receipt Date: 20041210
  Transmission Date: 20050328
  Serious: No
  Sender: FDA-Public Use
  Company Number: 2004CG02193

PATIENT
  Age: 50 Year
  Sex: Male
  Weight: 94 kg

DRUGS (1)
  1. CRESTOR [Suspect]
     Indication: HYPERCHOLESTEROLAEMIA
     Dosage: 10 MG DAILY PO
     Route: 048
     Dates: start: 20040909, end: 20040917

REACTIONS (2)
  - DERMATITIS EXFOLIATIVE [None]
  - TOXIC SKIN ERUPTION [None]
